FAERS Safety Report 9304812 (Version 1)
Quarter: 2013Q2

REPORT INFORMATION
  Report Type: Spontaneous
  Country: US (occurrence: None)
  Receive Date: 20130521
  Receipt Date: 20130521
  Transmission Date: 20140414
  Serious: Yes (Other)
  Sender: FDA-Public Use
  Company Number: None

PATIENT
  Sex: Female

DRUGS (1)
  1. LORAZEPAM [Suspect]
     Indication: DEPRESSION
     Dosage: ORAL (047)
     Route: 048

REACTIONS (2)
  - Feeling drunk [None]
  - Drug effect prolonged [None]
